FAERS Safety Report 4906928-8 (Version None)
Quarter: 2006Q1

REPORT INFORMATION
  Report Type: 
  Country: None (occurrence: None)
  Receive Date: 20060207
  Receipt Date: 20060201
  Transmission Date: 20060701
  Serious: Yes (Life-Threatening)
  Sender: FDA-Public Use
  Company Number: GB-2006-000845

PATIENT
  Age: 35 Year
  Sex: Female

DRUGS (5)
  1. LEVONORGESTREL [Suspect]
     Indication: POST COITAL CONTRACEPTION
     Dosage: 2 TAB, ORAL
     Route: 048
     Dates: start: 20050810, end: 20050810
  2. SERETIDE, ALLEN + HENBURYS LTD.^ (SALMETEROL XINAFOATE, FLUTICASONE PR [Concomitant]
  3. SUBUTEX [Concomitant]
  4. SALBUTAMOL (SALBUTAMOL) [Concomitant]
  5. HEROIN (DIAMORPHINE) [Concomitant]

REACTIONS (3)
  - INTERNATIONAL NORMALISED RATIO INCREASED [None]
  - PLATELET COUNT DECREASED [None]
  - VAGINAL HAEMORRHAGE [None]
